FAERS Safety Report 7637374-4 (Version None)
Quarter: 2011Q3

REPORT INFORMATION
  Report Type: 
  Country: None (occurrence: None)
  Receive Date: 20110726
  Receipt Date: 20110718
  Transmission Date: 20111222
  Serious: Yes (Other)
  Sender: FDA-Public Use
  Company Number: US-PFIZER INC-2011098830

PATIENT
  Sex: Female

DRUGS (3)
  1. SYNTHROID [Concomitant]
     Indication: HYPOTHYROIDISM
     Dosage: UNK
     Dates: start: 20091201
  2. VOLTAREN [Concomitant]
     Indication: SLE ARTHRITIS
     Dosage: UNK 1% GEL
     Dates: start: 20100901
  3. CHANTIX [Suspect]
     Indication: NICOTINE DEPENDENCE
     Dosage: 0.5 MG, 2X/DAY
     Route: 048
     Dates: start: 20110318, end: 20110321

REACTIONS (1)
  - STEVENS-JOHNSON SYNDROME [None]
